FAERS Safety Report 15318433 (Version 1)
Quarter: 2018Q3

REPORT INFORMATION
  Report Type: Spontaneous
  Country: US (occurrence: US)
  Receive Date: 20180825
  Receipt Date: 20180825
  Transmission Date: 20181010
  Serious: No
  Sender: FDA-Public Use
  Company Number: US-TEVA-2018-US-947291

PATIENT
  Sex: Female

DRUGS (1)
  1. RISEDRONIC ACID [Suspect]
     Active Substance: RISEDRONIC ACID
     Route: 065
     Dates: start: 2016

REACTIONS (3)
  - Muscle tightness [Recovered/Resolved]
  - Temporomandibular joint syndrome [Recovered/Resolved]
  - Orthosis user [Recovered/Resolved]

NARRATIVE: CASE EVENT DATE: 201712
